FAERS Safety Report 15371527 (Version 5)
Quarter: 2019Q1

REPORT INFORMATION
  Report Type: Spontaneous
  Country: US (occurrence: US)
  Receive Date: 20180911
  Receipt Date: 20190218
  Transmission Date: 20190417
  Serious: Yes (Hospitalization, Other)
  Sender: FDA-Public Use
  Company Number: US-DSJP-DSU-2017-139864

PATIENT

DRUGS (3)
  1. BENICAR HCT [Suspect]
     Active Substance: HYDROCHLOROTHIAZIDE\OLMESARTAN MEDOXOMIL
     Indication: HYPERTENSION
     Dosage: 40/12.5 MG, QD
     Route: 048
     Dates: start: 2011, end: 20160929
  2. BENICAR [Suspect]
     Active Substance: OLMESARTAN MEDOXOMIL
     Indication: HYPERTENSION
     Dosage: UNK
     Dates: start: 20131211, end: 20161011
  3. BENICAR [Suspect]
     Active Substance: OLMESARTAN MEDOXOMIL
     Dosage: 40 MG HALF TABLET (20 MG), QD
     Dates: start: 2016, end: 2016

REACTIONS (8)
  - Clostridium difficile colitis [Not Recovered/Not Resolved]
  - Hypotension [Recovering/Resolving]
  - Haemorrhoids [Recovering/Resolving]
  - Product administration error [Recovered/Resolved]
  - Cholelithiasis [Not Recovered/Not Resolved]
  - Pancreatitis acute [Not Recovered/Not Resolved]
  - Sprue-like enteropathy [Recovered/Resolved]
  - Acute kidney injury [Recovered/Resolved]

NARRATIVE: CASE EVENT DATE: 20130329
